FAERS Safety Report 20787015 (Version 2)
Quarter: 2022Q2

REPORT INFORMATION
  Report Type: Spontaneous
  Country: JP (occurrence: JP)
  Receive Date: 20220505
  Receipt Date: 20220622
  Transmission Date: 20220721
  Serious: Yes (Hospitalization, Other)
  Sender: FDA-Public Use
  Company Number: JP-ONO-2022JP011463

PATIENT
  Age: 56 Year
  Sex: Female
  Weight: 48.3 kg

DRUGS (5)
  1. PARSABIV [Suspect]
     Active Substance: ETELCALCETIDE HYDROCHLORIDE
     Indication: Hyperparathyroidism secondary
     Dosage: 2.5 MG, Q56H
     Route: 010
     Dates: start: 20190617, end: 20191216
  2. PARSABIV [Suspect]
     Active Substance: ETELCALCETIDE HYDROCHLORIDE
     Dosage: 2.5 MG, Q56H
     Route: 010
     Dates: start: 20200717, end: 20211206
  3. ROCALTROL [Concomitant]
     Active Substance: CALCITRIOL
     Dosage: 1 UG, Q56H
     Route: 065
     Dates: start: 20190311
  4. INSULIN NOS [Concomitant]
     Active Substance: INSULIN NOS
     Dosage: UNK
     Route: 065
  5. P-tol [Concomitant]
     Dosage: 750 MG, EVERYDAY
     Route: 048

REACTIONS (2)
  - Myocardial infarction [Recovering/Resolving]
  - Vascular calcification [Unknown]

NARRATIVE: CASE EVENT DATE: 20200702
